FAERS Safety Report 25766186 (Version 1)
Quarter: 2025Q3

REPORT INFORMATION
  Report Type: Spontaneous
  Country: US (occurrence: US)
  Receive Date: 20250905
  Receipt Date: 20250905
  Transmission Date: 20251021
  Serious: No
  Sender: DOMPE FARMACEUTICI
  Company Number: US-FARMAPROD-202408-2884

PATIENT
  Sex: Female

DRUGS (8)
  1. OXERVATE [Suspect]
     Active Substance: CENEGERMIN-BKBJ
     Indication: Neurotrophic keratopathy
     Route: 047
     Dates: start: 20240806
  2. RESTASIS [Concomitant]
     Active Substance: CYCLOSPORINE
  3. TOPIRAMATE [Concomitant]
     Active Substance: TOPIRAMATE
  4. CITALOPRAM HYDROBROMIDE [Concomitant]
     Active Substance: CITALOPRAM HYDROBROMIDE
  5. HYDROXYCHLOROQUINE SULFATE [Concomitant]
     Active Substance: HYDROXYCHLOROQUINE SULFATE
  6. LOSARTAN POTASSIUM [Concomitant]
     Active Substance: LOSARTAN POTASSIUM
  7. PILOCARPINE HYDROCHLORIDE [Concomitant]
     Active Substance: PILOCARPINE HYDROCHLORIDE
  8. OLUMIANT [Concomitant]
     Active Substance: BARICITINIB

REACTIONS (7)
  - Ocular discomfort [Unknown]
  - Eye pain [Recovered/Resolved]
  - Eye irritation [Unknown]
  - Eye irritation [Unknown]
  - Periorbital irritation [Unknown]
  - Migraine [Unknown]
  - Product dose omission issue [Unknown]
